FAERS Safety Report 26215561 (Version 1)
Quarter: 2025Q4

REPORT INFORMATION
  Report Type: Spontaneous
  Country: EU (occurrence: EU)
  Receive Date: 20251231
  Receipt Date: 20251231
  Transmission Date: 20260117
  Serious: Yes (Hospitalization, Other)
  Sender: AUROBINDO
  Company Number: EU-AFSSAPS-NY2025001972

PATIENT
  Age: 83 Year
  Sex: Male
  Weight: 76.5 kg

DRUGS (7)
  1. FUROSEMIDE [Suspect]
     Active Substance: FUROSEMIDE
     Indication: Hypertension
     Dosage: 20 MILLIGRAM, ONCE A DAY
     Route: 061
     Dates: start: 20251125, end: 20251201
  2. BACTRIM [Suspect]
     Active Substance: SULFAMETHOXAZOLE\TRIMETHOPRIM
     Indication: Urinary tract infection
     Dosage: 1 DOSAGE FORM, TWO TIMES A DAY
     Route: 061
     Dates: start: 20251119, end: 20251130
  3. BACTRIM [Suspect]
     Active Substance: SULFAMETHOXAZOLE\TRIMETHOPRIM
     Dosage: 1 DOSAGE FORM, ONCE A DAY
     Route: 061
     Dates: start: 20251130, end: 20251202
  4. CANDESARTAN CILEXETIL [Concomitant]
     Active Substance: CANDESARTAN CILEXETIL
     Indication: Hypertension
     Dosage: 16 MILLIGRAM, ONCE A DAY
     Route: 061
  5. KARDEGIC [Concomitant]
     Active Substance: ASPIRIN DL-LYSINE
     Indication: Cardiovascular event prophylaxis
     Dosage: 75 MILLIGRAM, ONCE A DAY
     Route: 061
  6. POTASSIUM CHLORIDE [Concomitant]
     Active Substance: POTASSIUM CHLORIDE
     Indication: Hypokalaemia
     Dosage: 1 DOSAGE FORM, ONCE A DAY
     Route: 061
  7. ZYMAD 50 000 UI, solution buvable en ampoule [Concomitant]
     Indication: Vitamin supplementation
     Dosage: 1 DOSAGE FORM, 1 MONTH
     Route: 061

REACTIONS (1)
  - Acute kidney injury [Recovering/Resolving]

NARRATIVE: CASE EVENT DATE: 20251125
